FAERS Safety Report 19178195 (Version 1)
Quarter: 2021Q2

REPORT INFORMATION
  Report Type: Spontaneous
  Country: CN (occurrence: CN)
  Receive Date: 20210426
  Receipt Date: 20210426
  Transmission Date: 20210717
  Serious: Yes (Hospitalization, Other)
  Sender: FDA-Public Use
  Company Number: CN-UCBSA-2021018071

PATIENT
  Age: 68 Year
  Sex: Female

DRUGS (1)
  1. KEPPRA [Suspect]
     Active Substance: LEVETIRACETAM
     Indication: EPILEPSY
     Dosage: ONE TABLET IN THE MORNING AND ONE TABLET IN THE EVENING

REACTIONS (2)
  - Nausea [Unknown]
  - Loss of consciousness [Unknown]
